FAERS Safety Report 7557772-7 (Version None)
Quarter: 2011Q2

REPORT INFORMATION
  Report Type: 
  Country: None (occurrence: None)
  Receive Date: 20110620
  Receipt Date: 20110616
  Transmission Date: 20111010
  Serious: Yes (Hospitalization, Other)
  Sender: FDA-Public Use
  Company Number: US-ABBOTT-11P-163-0720640-00

PATIENT
  Sex: Female
  Weight: 81.72 kg

DRUGS (4)
  1. SYNTHROID [Concomitant]
     Indication: HYPOTHYROIDISM
  2. METHOTREXATE [Concomitant]
     Indication: RHEUMATOID ARTHRITIS
  3. LEFLUNOMIDE [Concomitant]
     Indication: RHEUMATOID ARTHRITIS
  4. HUMIRA [Suspect]
     Indication: RHEUMATOID ARTHRITIS
     Dates: start: 20091028, end: 20100217

REACTIONS (11)
  - INFECTION IN AN IMMUNOCOMPROMISED HOST [None]
  - VOMITING [None]
  - PYREXIA [None]
  - NAUSEA [None]
  - OSTEOARTHRITIS [None]
  - PNEUMONIA [None]
  - COUGH [None]
  - RHEUMATOID ARTHRITIS [None]
  - RESPIRATORY TRACT CONGESTION [None]
  - DYSPNOEA [None]
  - DECREASED APPETITE [None]
